FAERS Safety Report 18056286 (Version 1)
Quarter: 2020Q3

REPORT INFORMATION
  Report Type: Spontaneous
  Country: FR (occurrence: FR)
  Receive Date: 20200722
  Receipt Date: 20200722
  Transmission Date: 20201103
  Serious: Yes (Hospitalization)
  Sender: FDA-Public Use
  Company Number: FR-BAUSCH-BL-2020-020354

PATIENT
  Age: 85 Year
  Sex: Female
  Weight: 111 kg

DRUGS (1)
  1. GENTAMICINE [Suspect]
     Active Substance: GENTAMICIN
     Indication: ERYSIPELAS
     Route: 042
     Dates: start: 20200206, end: 20200208

REACTIONS (1)
  - Renal failure [Recovered/Resolved with Sequelae]

NARRATIVE: CASE EVENT DATE: 20200208
